FAERS Safety Report 9345984 (Version 7)
Quarter: 2014Q1

REPORT INFORMATION
  Report Type: Report from Study
  Country: NL (occurrence: NL)
  Receive Date: 20130613
  Receipt Date: 20140319
  Transmission Date: 20141002
  Serious: Yes (Death, Hospitalization)
  Sender: FDA-Public Use
  Company Number: NL-ROCHE-1232241

PATIENT
  Age: 62 Year
  Sex: Female
  Weight: 104 kg

DRUGS (22)
  1. RITUXIMAB [Suspect]
     Indication: DIFFUSE LARGE B-CELL LYMPHOMA
     Route: 042
     Dates: start: 20130514
  2. RHUPH20/RITUXIMAB [Suspect]
     Indication: DIFFUSE LARGE B-CELL LYMPHOMA
     Dosage: ONCE DAILY PER CYCLE.
     Route: 058
     Dates: start: 20130528
  3. CYCLOPHOSPHAMIDE [Suspect]
     Indication: DIFFUSE LARGE B-CELL LYMPHOMA
     Dosage: ONCE DAILY PER CYCLE.
     Route: 042
     Dates: start: 20130528
  4. CYCLOPHOSPHAMIDE [Suspect]
     Route: 042
     Dates: start: 20130514
  5. DOXORUBICIN [Suspect]
     Indication: DIFFUSE LARGE B-CELL LYMPHOMA
     Dosage: ONCE DAILY PER CYCLE.
     Route: 042
     Dates: start: 20130528
  6. DOXORUBICIN [Suspect]
     Route: 042
     Dates: start: 20130514
  7. VINCRISTIN [Suspect]
     Indication: DIFFUSE LARGE B-CELL LYMPHOMA
     Dosage: ONCE DAILY PER CYCLE.
     Route: 042
     Dates: start: 20130528
  8. VINCRISTIN [Suspect]
     Route: 042
     Dates: start: 20130514
  9. PREDNISONE [Suspect]
     Indication: DIFFUSE LARGE B-CELL LYMPHOMA
     Route: 065
     Dates: start: 20130514
  10. PREDNISONE [Suspect]
     Dosage: DATE OF LAST DOSE PRIOR TO THE SAE 28/MAY/2013
     Route: 065
     Dates: start: 20130528
  11. NEULASTA [Concomitant]
     Route: 058
     Dates: start: 20130515, end: 20130515
  12. NEULASTA [Concomitant]
     Route: 058
     Dates: start: 20130529, end: 20130529
  13. PANTOPRAZOL [Concomitant]
     Route: 048
     Dates: start: 20130508, end: 20130604
  14. ORAMORPH [Concomitant]
     Route: 048
     Dates: start: 20130511, end: 20130604
  15. ALLOPURINOL [Concomitant]
     Route: 048
     Dates: start: 20130508, end: 20130602
  16. METOCLOPRAMID [Concomitant]
     Route: 048
     Dates: start: 20130514, end: 20130604
  17. GRANISETRON [Concomitant]
     Indication: PROPHYLAXIS
     Route: 065
     Dates: start: 20130514
  18. LIDOCAINE [Concomitant]
     Route: 048
     Dates: start: 20130530
  19. PARACETAMOL [Concomitant]
     Route: 048
     Dates: start: 20130514, end: 20130604
  20. PARACETAMOL [Concomitant]
     Route: 048
     Dates: start: 20130602, end: 20130604
  21. MOVICOLON [Concomitant]
     Dosage: 1DD1 SACHET
     Route: 065
     Dates: start: 20130514, end: 20130604
  22. FLUCONAZOLE [Concomitant]
     Route: 048
     Dates: start: 20130527, end: 20130602

REACTIONS (3)
  - Febrile neutropenia [Fatal]
  - Herpes simplex hepatitis [Fatal]
  - Hepatic enzyme increased [Fatal]
